FAERS Safety Report 9705059 (Version 3)
Quarter: 2015Q1

REPORT INFORMATION
  Report Type: Spontaneous
  Country: US (occurrence: US)
  Receive Date: 20131122
  Receipt Date: 20150326
  Transmission Date: 20150721
  Serious: Yes (Life-Threatening, Hospitalization)
  Sender: FDA-Public Use
  Company Number: US-BAYER-2013-139728

PATIENT
  Age: 25 Year
  Sex: Female
  Weight: 81.18 kg

DRUGS (10)
  1. MIRENA [Suspect]
     Active Substance: LEVONORGESTREL
     Indication: CONTRACEPTION
     Dosage: 20 MCG/24HR, CONT
     Route: 015
     Dates: start: 200904, end: 201001
  2. HYDROCODONE [Concomitant]
     Active Substance: HYDROCODONE
     Indication: VAGINISMUS
  3. TRAMADOL [Concomitant]
     Active Substance: TRAMADOL
     Indication: HEADACHE
     Dosage: UNK
     Dates: start: 20090812
  4. IBUPROFEN. [Concomitant]
     Active Substance: IBUPROFEN
     Indication: PAIN
     Dosage: AS NEEDED
     Dates: start: 20091012
  5. MIRENA [Suspect]
     Active Substance: LEVONORGESTREL
     Indication: CONTRACEPTION
     Dosage: 20 MCG/24HR, CONT
     Route: 015
     Dates: start: 200704, end: 200803
  6. TORADOL [Concomitant]
     Active Substance: KETOROLAC TROMETHAMINE
     Indication: MIGRAINE
     Dosage: AS NEEDED
     Dates: start: 200908
  7. NUBAIN [Concomitant]
     Active Substance: NALBUPHINE HYDROCHLORIDE
     Dosage: AS NEEDED
     Dates: start: 200908
  8. HYDROCODONE [Concomitant]
     Active Substance: HYDROCODONE
     Indication: BACK PAIN
     Dosage: AS NEEDED
     Dates: start: 20090813
  9. PHENERGAN [Concomitant]
     Active Substance: PROMETHAZINE HYDROCHLORIDE
     Indication: MIGRAINE
  10. VICODIN [Concomitant]
     Active Substance: ACETAMINOPHEN\HYDROCODONE BITARTRATE
     Indication: PELVIC PAIN
     Dosage: AS NEEDED
     Dates: start: 200908

REACTIONS (13)
  - Pelvic pain [None]
  - Anxiety [None]
  - General physical health deterioration [None]
  - Vaginismus [None]
  - Ovarian cyst [None]
  - Migraine [None]
  - Dyspareunia [None]
  - Emotional distress [None]
  - Device defective [None]
  - Anhedonia [None]
  - Injury [None]
  - Abdominal pain lower [None]
  - Endometriosis [None]

NARRATIVE: CASE EVENT DATE: 201011
